FAERS Safety Report 9281515 (Version 2)
Quarter: 2013Q3

REPORT INFORMATION
  Report Type: Spontaneous
  Country: US (occurrence: US)
  Receive Date: 20130509
  Receipt Date: 20130708
  Transmission Date: 20140515
  Serious: Yes (Other)
  Sender: FDA-Public Use
  Company Number: US-US-EMD SERONO, INC.-7051446

PATIENT
  Sex: Female

DRUGS (3)
  1. REBIF [Suspect]
     Indication: MULTIPLE SCLEROSIS
     Route: 058
     Dates: start: 20020220
  2. ADVIL                              /00109201/ [Concomitant]
     Indication: PREMEDICATION
  3. TYLENOL                            /00020001/ [Concomitant]
     Indication: PREMEDICATION

REACTIONS (1)
  - Lupus nephritis [Recovering/Resolving]
